FAERS Safety Report 19392148 (Version 1)
Quarter: 2021Q2

REPORT INFORMATION
  Report Type: Spontaneous
  Country: US (occurrence: US)
  Receive Date: 20210608
  Receipt Date: 20210608
  Transmission Date: 20210717
  Serious: Yes (Hospitalization)
  Sender: FDA-Public Use
  Company Number: US-PFIZER INC-2021633875

PATIENT
  Age: 80 Year
  Sex: Male
  Weight: 88.44 kg

DRUGS (2)
  1. LIDOCAINE HCL [Suspect]
     Active Substance: LIDOCAINE HYDROCHLORIDE
     Indication: ARTHRALGIA
     Dosage: 1 ML OF 1% LIDOCAINE
     Dates: start: 20210402
  2. SARAPIN [Concomitant]
     Active Substance: SARRACENIA PURPUREA
     Dosage: UNK
     Dates: start: 20210402, end: 20210402

REACTIONS (6)
  - Off label use [Unknown]
  - Pyrexia [Recovered/Resolved]
  - Infection [Unknown]
  - Chills [Recovered/Resolved]
  - Arthralgia [Recovered/Resolved]
  - Joint swelling [Not Recovered/Not Resolved]

NARRATIVE: CASE EVENT DATE: 20210402
